FAERS Safety Report 6373953-2 (Version None)
Quarter: 2009Q3

REPORT INFORMATION
  Report Type: 
  Country: None (occurrence: None)
  Receive Date: 20090924
  Receipt Date: 20090520
  Transmission Date: 20100115
  Serious: No
  Sender: FDA-Public Use
  Company Number: US-ASTRAZENECA-2009UW13106

PATIENT
  Age: 45 Year
  Sex: Male

DRUGS (4)
  1. SEROQUEL [Suspect]
     Route: 048
     Dates: start: 20070101
  2. SEROQUEL [Suspect]
     Route: 048
     Dates: start: 20081101
  3. TEGRETOL [Suspect]
  4. LITHIUM [Suspect]

REACTIONS (4)
  - AGITATION [None]
  - BLOOD CREATINE INCREASED [None]
  - MANIA [None]
  - METABOLIC FUNCTION TEST ABNORMAL [None]
